FAERS Safety Report 8760970 (Version 2)
Quarter: 2012Q4

REPORT INFORMATION
  Report Type: 
  Country: US (occurrence: US)
  Receive Date: 20120824
  Receipt Date: 20120830
  Transmission Date: 20130627
  Serious: Yes (Death)
  Sender: FDA-Public Use
  Company Number: US-ELI_LILLY_AND_COMPANY-US201208007132

PATIENT
  Sex: Male

DRUGS (2)
  1. CYMBALTA [Suspect]
     Dosage: 60 mg, unknown
  2. FLOMAX [Concomitant]
     Dosage: UNK, unknown

REACTIONS (4)
  - Death [Fatal]
  - Injury [Unknown]
  - Dizziness [Unknown]
  - Fall [Unknown]
